FAERS Safety Report 25882303 (Version 1)
Quarter: 2025Q4

REPORT INFORMATION
  Report Type: Spontaneous
  Country: US (occurrence: US)
  Receive Date: 20251006
  Receipt Date: 20251006
  Transmission Date: 20260118
  Serious: No
  Sender: ROCHE
  Company Number: US-ROCHE-10000402121

PATIENT
  Sex: Male

DRUGS (8)
  1. ERIVEDGE [Suspect]
     Active Substance: VISMODEGIB
     Indication: Basal cell carcinoma
     Route: 048
  2. MEGESTROL AC SUS [Concomitant]
     Dosage: 40MG/ML
  3. CARVEDILOL [Concomitant]
     Active Substance: CARVEDILOL
  4. ENTRESTO [Concomitant]
     Active Substance: SACUBITRIL\VALSARTAN
     Dosage: 49-51 MG
  5. LEVOCARNITINE [Concomitant]
     Active Substance: LEVOCARNITINE
  6. SERTRALINE H [Concomitant]
  7. SIROLIMUS [Concomitant]
     Active Substance: SIROLIMUS
  8. TACROLIMUS [Concomitant]
     Active Substance: TACROLIMUS

REACTIONS (1)
  - Decreased appetite [Unknown]
